FAERS Safety Report 4902786-6 (Version None)
Quarter: 2006Q1

REPORT INFORMATION
  Report Type: 
  Country: None (occurrence: None)
  Receive Date: 20060207
  Receipt Date: 20051128
  Transmission Date: 20060701
  Serious: Yes (Other)
  Sender: FDA-Public Use
  Company Number: FR-GLAXOSMITHKLINE-B0402345A

PATIENT
  Age: 55 Year
  Sex: Male
  Weight: 81 kg

DRUGS (2)
  1. AVANDIA [Suspect]
     Indication: DIABETES MELLITUS NON-INSULIN-DEPENDENT
     Dosage: 4MG PER DAY
     Route: 048
     Dates: start: 20050524, end: 20051128
  2. MEDIATOR [Concomitant]
     Indication: HYPERTRIGLYCERIDAEMIA
     Dosage: 150MG TWICE PER DAY
     Route: 048
     Dates: start: 20041124, end: 20051101

REACTIONS (2)
  - LEUKOPENIA [None]
  - NEUTROPENIA [None]
